FAERS Safety Report 24040659 (Version 4)
Quarter: 2024Q4

REPORT INFORMATION
  Report Type: Spontaneous
  Country: US (occurrence: US)
  Receive Date: 20240702
  Receipt Date: 20241121
  Transmission Date: 20250114
  Serious: No
  Sender: PFIZER
  Company Number: US-PFIZER INC-202400201844

PATIENT
  Age: 89 Year
  Sex: Male
  Weight: 54.43 kg

DRUGS (4)
  1. GENOTROPIN [Suspect]
     Active Substance: SOMATROPIN
     Indication: Hypopituitarism
     Dosage: 0.2 MG, 1X/DAY (EVERY DAY, 0.2 BELIEVES IT IS MG, WHATEVER DEVICE MAKES)
     Route: 030
  2. ALFUZOSIN [Concomitant]
     Active Substance: ALFUZOSIN
     Indication: Urinary incontinence
     Dosage: UNK
  3. CARVEDILOL [Concomitant]
     Active Substance: CARVEDILOL
     Indication: Blood calcium decreased
     Dosage: UNK
  4. FLUOXETINE [Concomitant]
     Active Substance: FLUOXETINE HYDROCHLORIDE
     Indication: Serum serotonin decreased
     Dosage: UNK

REACTIONS (2)
  - Device malfunction [Unknown]
  - Device information output issue [Unknown]

NARRATIVE: CASE EVENT DATE: 20240601
